FAERS Safety Report 24677368 (Version 5)
Quarter: 2025Q3

REPORT INFORMATION
  Report Type: Report from Study
  Country: US (occurrence: US)
  Receive Date: 20241129
  Receipt Date: 20250709
  Transmission Date: 20251021
  Serious: Yes (Other)
  Sender: ACADIA PHARMACEUTICALS
  Company Number: US-ACADIA PHARMACEUTICALS INC.-ACA-2024-PIM-007615

PATIENT
  Sex: Male

DRUGS (15)
  1. NUPLAZID [Suspect]
     Active Substance: PIMAVANSERIN TARTRATE
     Indication: Parkinson^s disease
     Dosage: 2 DOSAGE FORM (20 MG), QD, 2 TABLETS BY MOUTH AT BED TIME
     Route: 048
     Dates: start: 20200814
  2. AMANTADINE [Concomitant]
     Active Substance: AMANTADINE
  3. AMLODIPINE [Concomitant]
     Active Substance: AMLODIPINE BESYLATE
  4. DONEPEZIL [Concomitant]
     Active Substance: DONEPEZIL
  5. LOSARTAN POTASSIUM [Concomitant]
     Active Substance: LOSARTAN POTASSIUM
  6. MEMANTINE [Concomitant]
     Active Substance: MEMANTINE
  7. MEMANTINE [Concomitant]
     Active Substance: MEMANTINE
  8. PENTASA [Concomitant]
     Active Substance: MESALAMINE
  9. RASAGILINE [Concomitant]
     Active Substance: RASAGILINE
  10. RYTARY [Concomitant]
     Active Substance: CARBIDOPA\LEVODOPA
  11. RYTARY [Concomitant]
     Active Substance: CARBIDOPA\LEVODOPA
  12. SIMVASTATIN [Concomitant]
     Active Substance: SIMVASTATIN
  13. SIMVASTATIN [Concomitant]
     Active Substance: SIMVASTATIN
  14. TOPROL XL [Concomitant]
     Active Substance: METOPROLOL SUCCINATE
  15. TAMSULOSIN [Concomitant]
     Active Substance: TAMSULOSIN

REACTIONS (5)
  - Hallucination [Not Recovered/Not Resolved]
  - Condition aggravated [Not Recovered/Not Resolved]
  - Gait disturbance [Not Recovered/Not Resolved]
  - Confusional state [Not Recovered/Not Resolved]
  - Incorrect dose administered [Not Recovered/Not Resolved]
